FAERS Safety Report 7971483-5 (Version None)
Quarter: 2011Q4

REPORT INFORMATION
  Report Type: 
  Country: None (occurrence: None)
  Receive Date: 20111212
  Receipt Date: 20111205
  Transmission Date: 20120403
  Serious: Yes (Other)
  Sender: FDA-Public Use
  Company Number: NL-ROXANE LABORATORIES, INC.-2011-RO-01739RO

PATIENT
  Age: 15 Year
  Sex: Female
  Weight: 62 kg

DRUGS (2)
  1. BUSPIRONE HCL [Suspect]
     Indication: ATTENTION DEFICIT/HYPERACTIVITY DISORDER
     Dosage: 30 MG
  2. DEXAMETHASONE [Suspect]
     Dosage: 20 MG

REACTIONS (2)
  - DRUG DISPENSING ERROR [None]
  - CUSHING'S SYNDROME [None]
